FAERS Safety Report 13234992 (Version 1)
Quarter: 2017Q1

REPORT INFORMATION
  Report Type: Other
  Country: US (occurrence: US)
  Receive Date: 20170215
  Receipt Date: 20170215
  Transmission Date: 20170428
  Serious: Yes (Hospitalization, Other)
  Sender: FDA-Public Use
  Company Number: US-ACTELION-A-CH2017-149518

PATIENT
  Age: 33 Year
  Sex: Male

DRUGS (1)
  1. EPOPROSTENOL SODIUM. [Suspect]
     Active Substance: EPOPROSTENOL SODIUM
     Indication: PULMONARY ARTERIAL HYPERTENSION
     Route: 042

REACTIONS (13)
  - Erythema [Recovering/Resolving]
  - Goitre [Recovering/Resolving]
  - Blood thyroid stimulating hormone decreased [Recovering/Resolving]
  - Thyroxine free increased [Recovering/Resolving]
  - Orthopnoea [Recovering/Resolving]
  - Lymphadenopathy [Recovering/Resolving]
  - Thyroidectomy [Unknown]
  - Dysphagia [Recovering/Resolving]
  - Tachycardia [Recovering/Resolving]
  - Tri-iodothyronine increased [Recovering/Resolving]
  - Cardiopulmonary failure [Recovering/Resolving]
  - Basedow^s disease [Recovering/Resolving]
  - Localised oedema [Recovering/Resolving]
